FAERS Safety Report 23393416 (Version 2)
Quarter: 2024Q1

REPORT INFORMATION
  Report Type: Report from Study
  Country: EG (occurrence: EG)
  Receive Date: 20240111
  Receipt Date: 20240213
  Transmission Date: 20240410
  Serious: Yes (Hospitalization, Other)
  Sender: FDA-Public Use
  Company Number: EG-SANDOZ-SDZ2024EG002365

PATIENT
  Sex: Male

DRUGS (6)
  1. OMNITROPE [Suspect]
     Active Substance: SOMATROPIN
     Dosage: 0.6 MG, QD
     Route: 058
  2. OMNITROPE [Suspect]
     Active Substance: SOMATROPIN
     Indication: Growth hormone deficiency
     Dosage: 0.3 MG, QD
     Route: 058
     Dates: start: 20200831
  3. CALDIN ZINC [Concomitant]
     Indication: Supplementation therapy
     Dosage: UNK(SINCE HE WAS 2)
     Route: 048
  4. VALPROATE SODIUM [Concomitant]
     Active Substance: VALPROATE SODIUM
     Indication: Brain stent insertion
     Dosage: 225 ML, BID
     Route: 065
     Dates: start: 202208
  5. LEVOCARNITINE [Concomitant]
     Active Substance: LEVOCARNITINE
     Indication: Supplementation therapy
     Dosage: UNK(0.5 OF FILLED DROPPER /DAY(SINCE HE WAS 2)
     Route: 065
  6. LEVETIRACETAM [Concomitant]
     Active Substance: LEVETIRACETAM
     Indication: Brain stent insertion
     Dosage: 4.5 CM/DAY
     Route: 048

REACTIONS (6)
  - Vascular stent occlusion [Recovered/Resolved]
  - Change in seizure presentation [Not Recovered/Not Resolved]
  - Expired device used [Unknown]
  - Wrong technique in product usage process [Unknown]
  - Drug ineffective [Unknown]
  - Wrong technique in product usage process [Unknown]
